FAERS Safety Report 17921250 (Version 1)
Quarter: 2020Q2

REPORT INFORMATION
  Report Type: Spontaneous
  Country: US (occurrence: US)
  Receive Date: 20200622
  Receipt Date: 20200622
  Transmission Date: 20200714
  Serious: No
  Sender: FDA-Public Use
  Company Number: US-BEH-2020118477

PATIENT
  Sex: Female

DRUGS (2)
  1. HUMATE-P [Suspect]
     Active Substance: HUMAN COAGULATION FACTOR VIII/VON WILLEBRAND FACTOR COMPLEX
     Indication: VON WILLEBRAND^S DISEASE
     Dosage: UNK
     Route: 065
     Dates: start: 2020
  2. HUMATE-P [Suspect]
     Active Substance: HUMAN COAGULATION FACTOR VIII/VON WILLEBRAND FACTOR COMPLEX
     Indication: VON WILLEBRAND^S DISEASE
     Dosage: UNK
     Route: 065
     Dates: start: 2020

REACTIONS (4)
  - Headache [Unknown]
  - Alopecia [Not Recovered/Not Resolved]
  - Paraesthesia [Unknown]
  - Dyspnoea [Unknown]

NARRATIVE: CASE EVENT DATE: 2020
